FAERS Safety Report 23995897 (Version 3)
Quarter: 2024Q3

REPORT INFORMATION
  Report Type: Spontaneous
  Country: CN (occurrence: None)
  Receive Date: 20240620
  Receipt Date: 20240816
  Transmission Date: 20241016
  Serious: Yes (Hospitalization, Other)
  Sender: ASTRAZENECA
  Company Number: 2024A119177

PATIENT
  Age: 63 Year
  Sex: Male

DRUGS (1)
  1. BREZTRI [Suspect]
     Active Substance: BUDESONIDE\FORMOTEROL\GLYCOPYRROLATE
     Indication: Chronic obstructive pulmonary disease
     Dosage: TOOK THE DRUG TWICE A DAY TWO YEARS AGO. STARTED USING THE DRUG THREE TIMES A DAY IN THE SECOND H...
     Route: 055

REACTIONS (6)
  - Asthma [Recovering/Resolving]
  - General physical health deterioration [Not Recovered/Not Resolved]
  - COVID-19 pneumonia [Unknown]
  - Product use issue [Not Recovered/Not Resolved]
  - Wrong technique in device usage process [Unknown]
  - Device delivery system issue [Unknown]
